FAERS Safety Report 7399253-X (Version None)
Quarter: 2011Q2

REPORT INFORMATION
  Report Type: 
  Country: None (occurrence: None)
  Receive Date: 20110407
  Receipt Date: 20110324
  Transmission Date: 20111010
  Serious: Yes (Death, Life-Threatening, Other)
  Sender: FDA-Public Use
  Company Number: FR-CELGENEUS-056-21880-10071930

PATIENT
  Sex: Male
  Weight: 89 kg

DRUGS (7)
  1. CYTARABINE [Suspect]
     Dosage: 400 MILLIGRAM
     Route: 051
     Dates: start: 20100625, end: 20100701
  2. REVLIMID [Suspect]
     Dosage: 10 MILLIGRAM
     Route: 048
     Dates: start: 20100625, end: 20100715
  3. CANCIDAS [Concomitant]
     Route: 065
     Dates: start: 20100712, end: 20100701
  4. DOXORUBICIN [Concomitant]
     Dosage: 500 MILLIGRAM/SQ. METER
     Route: 065
     Dates: start: 20100625
  5. DAUNORUBICIN [Suspect]
     Dosage: 120 MILLIGRAM
     Route: 051
     Dates: start: 20100625, end: 20100627
  6. VANCOMYCIN [Concomitant]
     Route: 065
     Dates: start: 20100712, end: 20100701
  7. CYTARABINE [Suspect]
     Dosage: 200 MILLIGRAM/SQ. METER
     Route: 051

REACTIONS (3)
  - SEPTIC SHOCK [None]
  - PNEUMONIA [None]
  - HYPERKALAEMIA [None]
